FAERS Safety Report 17347706 (Version 1)
Quarter: 2020Q1

REPORT INFORMATION
  Report Type: Report from Study
  Country: US (occurrence: US)
  Receive Date: 20200129
  Receipt Date: 20200129
  Transmission Date: 20200409
  Serious: No
  Sender: FDA-Public Use
  Company Number: US-EXELIXIS-CABO-19021778

PATIENT
  Sex: Male

DRUGS (3)
  1. CABOMETYX [Suspect]
     Active Substance: CABOZANTINIB S-MALATE
     Dosage: 20 MG, QD
     Route: 048
     Dates: end: 20191205
  2. CABOMETYX [Suspect]
     Active Substance: CABOZANTINIB S-MALATE
     Indication: RENAL CANCER
     Dosage: 60 MG, QD (WITH OUT FOOD)
     Dates: start: 20190423, end: 201905
  3. CABOMETYX [Suspect]
     Active Substance: CABOZANTINIB S-MALATE
     Dosage: 40 MG, QD (IN THE EVENING WITH OUT FOOD)
     Dates: start: 20190618

REACTIONS (8)
  - Diarrhoea [Unknown]
  - Gout [Recovered/Resolved]
  - Nausea [Unknown]
  - Decreased appetite [Recovering/Resolving]
  - Hot flush [Recovering/Resolving]
  - Abdominal pain upper [Unknown]
  - Blood pressure increased [Unknown]
  - Fatigue [Recovering/Resolving]
